FAERS Safety Report 5686611-4 (Version None)
Quarter: 2008Q1

REPORT INFORMATION
  Report Type: 
  Country: None (occurrence: None)
  Receive Date: 20080328
  Receipt Date: 20070517
  Transmission Date: 20080703
  Serious: No
  Sender: FDA-Public Use
  Company Number: US-BAYER-US-2007-018198

PATIENT
  Age: 37 Year
  Sex: Female
  Weight: 63 kg

DRUGS (1)
  1. MIRENA [Suspect]
     Indication: CONTRACEPTION
     Route: 015
     Dates: start: 20070313, end: 20070426

REACTIONS (6)
  - ANGER [None]
  - DEPRESSION [None]
  - HEADACHE [None]
  - LOSS OF LIBIDO [None]
  - METRORRHAGIA [None]
  - MOOD ALTERED [None]
